FAERS Safety Report 9203124 (Version 1)
Quarter: 2013Q1

REPORT INFORMATION
  Report Type: Spontaneous
  Country: US (occurrence: None)
  Receive Date: 20120709
  Receipt Date: 20120709
  Transmission Date: 20140127
  Serious: Yes (Hospitalization)
  Sender: FDA-Public Use
  Company Number: PHEH2011US01419

PATIENT
  Age: 65 Year
  Sex: Female

DRUGS (1)
  1. GLEEVEC (IMATINIB) [Suspect]
     Indication: CHRONIC MYELOID LEUKAEMIA
     Dosage: 400 MG, 1TABLET DAILY, ORAL
     Route: 048
     Dates: start: 20110711

REACTIONS (4)
  - Abdominal pain upper [None]
  - Drug intolerance [None]
  - Bone marrow disorder [None]
  - Full blood count decreased [None]
